FAERS Safety Report 7941120-4 (Version None)
Quarter: 2011Q4

REPORT INFORMATION
  Report Type: 
  Country: None (occurrence: None)
  Receive Date: 20111128
  Receipt Date: 20111115
  Transmission Date: 20120403
  Serious: Yes (Hospitalization, Other)
  Sender: FDA-Public Use
  Company Number: US-BAYER-2010-002237

PATIENT
  Age: 25 Year
  Sex: Female
  Weight: 74.83 kg

DRUGS (3)
  1. YASMIN [Suspect]
     Indication: ACNE
     Dosage: UNK
     Dates: start: 20061201, end: 20071201
  2. YASMIN [Suspect]
     Indication: PREMENSTRUAL SYNDROME
  3. YASMIN [Suspect]

REACTIONS (4)
  - GALLBLADDER INJURY [None]
  - NEPHROLITHIASIS [None]
  - CHOLELITHIASIS [None]
  - CHOLECYSTITIS CHRONIC [None]
